FAERS Safety Report 9007817 (Version 1)
Quarter: 2013Q1

REPORT INFORMATION
  Report Type: Spontaneous
  Country: US (occurrence: US)
  Receive Date: 20130111
  Receipt Date: 20130111
  Transmission Date: 20140127
  Serious: No
  Sender: FDA-Public Use
  Company Number: US-009507513-1301USA003429

PATIENT
  Age: 90 Year
  Sex: Female

DRUGS (7)
  1. JANUVIA [Suspect]
     Indication: DIABETES MELLITUS
     Dosage: 50 MG, QD
     Route: 048
     Dates: start: 20121213
  2. WARFARIN [Concomitant]
  3. METFORMIN [Concomitant]
  4. METOPROLOL [Concomitant]
  5. ZOCOR [Concomitant]
  6. LASIX (FUROSEMIDE) [Concomitant]
  7. PANTOPRAZOLE [Concomitant]

REACTIONS (2)
  - Headache [Recovered/Resolved]
  - Headache [Not Recovered/Not Resolved]
